FAERS Safety Report 5980762-2 (Version None)
Quarter: 2008Q4

REPORT INFORMATION
  Report Type: 
  Country: None (occurrence: None)
  Receive Date: 20081205
  Receipt Date: 20080410
  Transmission Date: 20090506
  Serious: No
  Sender: FDA-Public Use
  Company Number: A0722064A

PATIENT
  Sex: Female

DRUGS (1)
  1. COMMIT [Suspect]
     Indication: SMOKING CESSATION THERAPY
     Dates: start: 20080407, end: 20080407

REACTIONS (2)
  - HICCUPS [None]
  - OESOPHAGEAL SPASM [None]
